FAERS Safety Report 7486558-7 (Version None)
Quarter: 2011Q2

REPORT INFORMATION
  Report Type: 
  Country: None (occurrence: None)
  Receive Date: 20110517
  Receipt Date: 20110512
  Transmission Date: 20111010
  Serious: Yes (Hospitalization)
  Sender: FDA-Public Use
  Company Number: SE-PFIZER INC-2010115247

PATIENT
  Age: 62 Year
  Sex: Female
  Weight: 86.7 kg

DRUGS (18)
  1. INOLAXOL [Concomitant]
     Indication: CONSTIPATION
     Dosage: UNK
     Dates: end: 20100820
  2. ALVEDON [Concomitant]
     Indication: PAIN
     Dosage: UNK
  3. METOCLOPRAMIDE [Concomitant]
     Indication: NAUSEA
     Dosage: UNK
  4. DULOXETINE HYDROCHLORIDE [Suspect]
     Indication: DIABETIC NEUROPATHY
     Dosage: UNK
     Route: 048
     Dates: start: 20100421, end: 20100824
  5. AERIUS [Concomitant]
     Indication: RESPIRATION ABNORMAL
     Dosage: UNK
     Dates: end: 20100820
  6. MOVIPREP [Concomitant]
     Indication: CONSTIPATION
     Dosage: UNK
     Dates: end: 20100820
  7. IRBESARTAN [Concomitant]
     Indication: HYPERTENSION
     Dosage: UNK
     Dates: end: 20100820
  8. PULMICORT [Concomitant]
     Indication: RESPIRATION ABNORMAL
     Dosage: UNK
  9. SIMVASTATIN [Concomitant]
     Indication: HYPERLIPIDAEMIA
     Dosage: UNK
  10. PREGABALIN [Suspect]
     Indication: DIABETIC NEUROPATHY
     Dosage: UNK
     Route: 048
     Dates: start: 20100421, end: 20100824
  11. EMADINE [Concomitant]
     Indication: HYPERSENSITIVITY
     Dosage: UNK
     Dates: end: 20100820
  12. PAPAVERIN [Concomitant]
     Indication: BLADDER PAIN
     Dosage: UNK
     Dates: end: 20100820
  13. SPIRIVA [Concomitant]
     Indication: RESPIRATION ABNORMAL
     Dosage: UNK
     Dates: end: 20100820
  14. LOCACORTEN [Concomitant]
     Indication: PRURITUS
     Dosage: UNK
     Dates: end: 20100820
  15. LEVOTHYROXINE [Concomitant]
     Indication: HYPOTHYROIDISM
     Dosage: UNK
  16. INSULIN [Concomitant]
     Indication: DIABETES MELLITUS
     Dosage: UNK
  17. NEXIUM [Concomitant]
     Indication: REFLUX GASTRITIS
     Dosage: UNK
     Dates: end: 20100820
  18. OXYCODONE [Concomitant]
     Indication: PAIN
     Dosage: UNK

REACTIONS (1)
  - CONCUSSION [None]
